FAERS Safety Report 9981169 (Version 1)
Quarter: 2014Q1

REPORT INFORMATION
  Report Type: Spontaneous
  Country: IT (occurrence: None)
  Receive Date: 20140305
  Receipt Date: 20140305
  Transmission Date: 20141002
  Serious: Yes (Other)
  Sender: FDA-Public Use
  Company Number: 2014HINLIT0178

PATIENT
  Age: 39 Year
  Sex: Female

DRUGS (3)
  1. LITHIUM (LITHIUM) [Suspect]
     Indication: BIPOLAR I DISORDER
  2. FOLIC ACID (FOLIC ACID) [Concomitant]
  3. T4 (THYROXINE) [Concomitant]

REACTIONS (2)
  - Acquired haemophilia [None]
  - Exposure during pregnancy [None]
